FAERS Safety Report 9028290 (Version 1)
Quarter: 2013Q1

REPORT INFORMATION
  Report Type: Spontaneous
  Country: US (occurrence: None)
  Receive Date: 20130115
  Receipt Date: 20130115
  Transmission Date: 20140127
  Serious: Yes (Other)
  Sender: FDA-Public Use
  Company Number: None

PATIENT
  Age: 23 Year
  Sex: Female
  Weight: 77.11 kg

DRUGS (2)
  1. TRINESSA [Suspect]
     Route: 048
  2. LEVOTHYROXINE [Suspect]

REACTIONS (3)
  - Fungal infection [None]
  - Disease recurrence [None]
  - Vulvovaginal discomfort [None]
